FAERS Safety Report 10446656 (Version 1)
Quarter: 2014Q3

REPORT INFORMATION
  Report Type: Spontaneous
  Country: US (occurrence: None)
  Receive Date: 20140910
  Receipt Date: 20140910
  Transmission Date: 20150326
  Serious: Yes (Other)
  Sender: FDA-Public Use
  Company Number: None

PATIENT
  Age: 78 Year
  Sex: Female
  Weight: 65.77 kg

DRUGS (1)
  1. NORCO [Suspect]
     Active Substance: ACETAMINOPHEN\HYDROCODONE BITARTRATE
     Indication: BACK PAIN
     Dosage: 1 PILL, FOUR TIMES DAILY, TAKEN BY MOUTH
     Route: 048
     Dates: start: 20140203, end: 20140908

REACTIONS (11)
  - Product substitution issue [None]
  - No therapeutic response [None]
  - Activities of daily living impaired [None]
  - Dysstasia [None]
  - Fatigue [None]
  - Lethargy [None]
  - Intentional product misuse [None]
  - Sleep attacks [None]
  - Somnolence [None]
  - Movement disorder [None]
  - Adverse drug reaction [None]

NARRATIVE: CASE EVENT DATE: 20140203
